FAERS Safety Report 24416924 (Version 1)
Quarter: 2024Q4

REPORT INFORMATION
  Report Type: Report from Study
  Country: US (occurrence: US)
  Receive Date: 20241009
  Receipt Date: 20241009
  Transmission Date: 20250114
  Serious: Yes (Death, Other)
  Sender: ABBVIE
  Company Number: US-ABBVIE-5954816

PATIENT
  Sex: Female

DRUGS (1)
  1. HUMIRA [Suspect]
     Active Substance: ADALIMUMAB
     Indication: Hidradenitis
     Dosage: CITRATE FREE
     Route: 058

REACTIONS (6)
  - Motion sickness [Fatal]
  - Weight decreased [Unknown]
  - Arthralgia [Unknown]
  - Gastric banding reversal [Unknown]
  - Fatigue [Unknown]
  - Vomiting [Unknown]
